FAERS Safety Report 4415035-2 (Version None)
Quarter: 2004Q3

REPORT INFORMATION
  Report Type: 
  Country: None (occurrence: None)
  Receive Date: 20040803
  Receipt Date: 20040803
  Transmission Date: 20050211
  Serious: Yes (Hospitalization)
  Sender: FDA-Public Use
  Company Number: None

PATIENT
  Age: 50 Year
  Sex: Female
  Weight: 100.2449 kg

DRUGS (1)
  1. DARBEPOETIN ALFA [Suspect]
     Indication: ANAEMIA OF CHRONIC DISEASE
     Dosage: SC INJ EVERY 2 WKS @ 1.5 MCG/KG
     Route: 058
     Dates: start: 20040517, end: 20040712

REACTIONS (1)
  - PNEUMONIA [None]
